FAERS Safety Report 7798461-3 (Version None)
Quarter: 2011Q4

REPORT INFORMATION
  Report Type: 
  Country: None (occurrence: None)
  Receive Date: 20111005
  Receipt Date: 20111005
  Transmission Date: 20120403
  Serious: Yes (Other)
  Sender: FDA-Public Use
  Company Number: TH-ABBOTT-11P-155-0860426-00

PATIENT
  Age: 61 Year
  Sex: Female
  Weight: 56 kg

DRUGS (4)
  1. SEVOFLURANE [Suspect]
     Indication: ANAESTHESIA
     Route: 055
     Dates: start: 20081022, end: 20081022
  2. SUCCINYLCHOLINE CHLORIDE [Concomitant]
     Indication: PRODUCT USED FOR UNKNOWN INDICATION
     Dosage: ~1.2 MG/KG
     Route: 042
     Dates: start: 20081022, end: 20081022
  3. MORPHINE [Concomitant]
     Indication: PRODUCT USED FOR UNKNOWN INDICATION
     Dosage: ~1 MG/KG
     Dates: start: 20081022, end: 20081022
  4. NIMBEX [Concomitant]
     Indication: PRODUCT USED FOR UNKNOWN INDICATION
     Dosage: ~1.4 MG/KG
     Route: 042
     Dates: start: 20081022, end: 20081022

REACTIONS (1)
  - ANAESTHETIC COMPLICATION [None]
